FAERS Safety Report 14268344 (Version 2)
Quarter: 2018Q4

REPORT INFORMATION
  Report Type: Spontaneous
  Country: CA (occurrence: CA)
  Receive Date: 20171211
  Receipt Date: 20181010
  Transmission Date: 20190204
  Serious: Yes (Other)
  Sender: FDA-Public Use
  Company Number: CA-SA-2017SA243976

PATIENT
  Age: 33 Year
  Sex: Male
  Weight: 90.71 kg

DRUGS (2)
  1. TUBERSOL [Suspect]
     Active Substance: TUBERCULIN PURIFIED PROTEIN DERIVATIVE
     Indication: TUBERCULIN TEST
     Dosage: .1 ML
     Route: 023
     Dates: start: 20171127, end: 20171127
  2. CELECOXIB. [Concomitant]
     Active Substance: CELECOXIB
     Indication: PRODUCT USED FOR UNKNOWN INDICATION
     Dosage: 200 MG,BID
     Route: 065

REACTIONS (7)
  - Aphonia [Recovered/Resolved]
  - Tuberculin test negative [Unknown]
  - Lung disorder [Unknown]
  - Pleural effusion [Recovered/Resolved]
  - Cough [Recovered/Resolved]
  - Eating disorder [Recovered/Resolved]
  - Pulmonary congestion [Recovered/Resolved]

NARRATIVE: CASE EVENT DATE: 20171127
